FAERS Safety Report 19310509 (Version 1)
Quarter: 2021Q2

REPORT INFORMATION
  Report Type: Spontaneous
  Country: AR (occurrence: AR)
  Receive Date: 20210526
  Receipt Date: 20210526
  Transmission Date: 20210717
  Serious: Yes (Death)
  Sender: FDA-Public Use
  Company Number: AR-PFIZER INC-2021560112

PATIENT
  Age: 50 Year
  Sex: Female

DRUGS (1)
  1. TALZENNA [Suspect]
     Active Substance: TALAZOPARIB TOSYLATE
     Indication: BREAST CANCER METASTATIC
     Dosage: 1 MG, DAILY
     Dates: start: 20201207

REACTIONS (1)
  - Death [Fatal]

NARRATIVE: CASE EVENT DATE: 20210308
